FAERS Safety Report 4483403-9 (Version None)
Quarter: 2004Q4

REPORT INFORMATION
  Report Type: 
  Country: None (occurrence: None)
  Receive Date: 20041020
  Receipt Date: 20041005
  Transmission Date: 20050328
  Serious: Yes (Hospitalization)
  Sender: FDA-Public Use
  Company Number: 239763

PATIENT
  Age: 59 Year
  Sex: Male
  Weight: 80 kg

DRUGS (2)
  1. MIXTARD 30 PENFILL(INSULIN HUMAN) SUSPENSION FOR INJECTION, 100IU/ML [Suspect]
     Indication: DIABETES MELLITUS INSULIN-DEPENDENT
     Dosage: 100 IU, QD
  2. NOVOPEN 3 (INSULIN DELIVERY DEVICE) [Concomitant]

REACTIONS (2)
  - INJECTION SITE ABSCESS [None]
  - PHARMACEUTICAL PRODUCT COMPLAINT [None]
